FAERS Safety Report 8477462-6 (Version None)
Quarter: 2012Q2

REPORT INFORMATION
  Report Type: 
  Country: None (occurrence: None)
  Receive Date: 20120629
  Receipt Date: 20120626
  Transmission Date: 20120825
  Serious: Yes (Death)
  Sender: FDA-Public Use
  Company Number: PHEH2012US012657

PATIENT
  Sex: Female

DRUGS (6)
  1. CALCIUM [Concomitant]
  2. PERCOCET [Concomitant]
  3. ZOMETA [Suspect]
     Dosage: 4 MG/5ML, QMO
  4. IBUPROFEN [Concomitant]
  5. FASLODEX [Concomitant]
  6. OMEPRAZOLE [Concomitant]

REACTIONS (1)
  - DEATH [None]
